FAERS Safety Report 5124217-6 (Version None)
Quarter: 2006Q4

REPORT INFORMATION
  Report Type: 
  Country: None (occurrence: None)
  Receive Date: 20061010
  Receipt Date: 20060220
  Transmission Date: 20070319
  Serious: Yes (Death, Life-Threatening, Other)
  Sender: FDA-Public Use
  Company Number: US-JNJFOC-20061001790

PATIENT
  Sex: Female
  Weight: 80 kg

DRUGS (22)
  1. REOPRO [Suspect]
     Indication: CORONARY ARTERY DISEASE
     Route: 042
  2. HEPARIN [Concomitant]
     Indication: ACUTE CORONARY SYNDROME
  3. NADROPARIN [Concomitant]
     Indication: CORONARY ARTERY DISEASE
  4. FENTANYL [Concomitant]
     Indication: ANALGESIC EFFECT
  5. MORPHINE [Concomitant]
     Indication: ANALGESIC EFFECT
  6. MANNITOL [Concomitant]
     Indication: CEREBROVASCULAR ACCIDENT
  7. NOOTROPIL [Concomitant]
     Indication: CEREBROVASCULAR ACCIDENT
  8. NITROGLYCERIN [Concomitant]
     Indication: AORTIC DISSECTION
  9. AUGMENTIN [Concomitant]
     Indication: INFECTION PROPHYLAXIS
  10. PARALEN [Concomitant]
     Indication: ANTIPYRESIS
  11. METROPROLOL [Concomitant]
     Indication: TACHYCARDIA
  12. DILTIAZEM HCL [Concomitant]
     Indication: TACHYCARDIA
  13. VERAPAMIL [Concomitant]
     Indication: TACHYCARDIA
  14. BISOPROLOL FUMARATE [Concomitant]
     Indication: HYPERTENSION
  15. LISINOPRIL [Concomitant]
     Indication: HYPERTENSION
  16. METIZOL [Concomitant]
     Indication: HYPERTHYROIDISM
  17. DOPAMINE HCL IN 5% DEXTROSE [Concomitant]
     Indication: HYPOTENSION
  18. FENICORT [Concomitant]
     Indication: CORONARY ANGIOPLASTY
  19. CLEMASTINE FUMARATE [Concomitant]
     Indication: CORONARY ANGIOPLASTY
  20. PROTAMINE SULFATE [Concomitant]
     Indication: AORTIC DISSECTION
  21. FORADIL [Concomitant]
     Indication: CHRONIC OBSTRUCTIVE PULMONARY DISEASE
  22. ASPIRIN [Concomitant]
     Indication: CORONARY ARTERY DISEASE

REACTIONS (5)
  - CARDIAC FAILURE [None]
  - GASTROINTESTINAL HAEMORRHAGE [None]
  - ISCHAEMIC STROKE [None]
  - PLATELET COUNT DECREASED [None]
  - WOUND [None]
